FAERS Safety Report 4908991-7 (Version None)
Quarter: 2006Q1

REPORT INFORMATION
  Report Type: 
  Country: None (occurrence: None)
  Receive Date: 20060209
  Receipt Date: 20060123
  Transmission Date: 20060701
  Serious: Yes (Hospitalization)
  Sender: FDA-Public Use
  Company Number: US200601004948

PATIENT
  Age: 65 Year

DRUGS (2)
  1. FORTEO [Suspect]
     Indication: OSTEOPOROSIS
     Dates: start: 20040322
  2. FORTEO [Concomitant]

REACTIONS (3)
  - FATIGUE [None]
  - STAPHYLOCOCCAL INFECTION [None]
  - SUTURE RELATED COMPLICATION [None]
